FAERS Safety Report 8224840-6 (Version None)
Quarter: 2012Q1

REPORT INFORMATION
  Report Type: 
  Country: None (occurrence: None)
  Receive Date: 20120319
  Receipt Date: 20120305
  Transmission Date: 20120608
  Serious: Yes (Other)
  Sender: FDA-Public Use
  Company Number: 2012MA003228

PATIENT
  Age: 36 Year
  Sex: Female

DRUGS (5)
  1. CLONAZEPAM [Suspect]
     Indication: PRODUCT USED FOR UNKNOWN INDICATION
     Dosage: 2 MG;QD;PO
     Route: 048
  2. BACLOFEN [Suspect]
     Dosage: 5 MG;TID;
     Dates: end: 20111209
  3. NEUROBLOC (BOTULINUM TOXIN TYPE B) [Suspect]
     Indication: DYSTONIA
     Dosage: 10000 IU; ;IM
     Route: 030
     Dates: start: 20090604
  4. PREGABALIN [Suspect]
     Indication: ILL-DEFINED DISORDER
     Dosage: 150 MG;BID;PO
     Route: 048
     Dates: start: 20111203, end: 20111209
  5. AMITRIPTYLINE HCL [Suspect]
     Dosage: 25 MG;QD;PO
     Route: 048

REACTIONS (3)
  - ABORTION SPONTANEOUS [None]
  - MATERNAL EXPOSURE DURING PREGNANCY [None]
  - PREGNANCY [None]
